FAERS Safety Report 19141116 (Version 1)
Quarter: 2021Q2

REPORT INFORMATION
  Report Type: Other
  Country: CA (occurrence: CA)
  Receive Date: 20210415
  Receipt Date: 20210415
  Transmission Date: 20210717
  Serious: Yes (Other)
  Sender: FDA-Public Use
  Company Number: CA-APOTEX-2021AP009007

PATIENT
  Age: 69 Year
  Sex: Male

DRUGS (17)
  1. CIPROFLOXACIN. [Suspect]
     Active Substance: CIPROFLOXACIN
     Indication: MIGRAINE
     Dosage: 1 DOSAGE FORM, BID
     Route: 065
  2. ULTIBRO BREEZHALER [Suspect]
     Active Substance: GLYCOPYRRONIUM\INDACATEROL
     Indication: MIGRAINE
     Dosage: 1 DOSAGE FORM, QD
  3. AMITRIPTYLINE [Suspect]
     Active Substance: AMITRIPTYLINE
     Indication: PRODUCT USED FOR UNKNOWN INDICATION
     Dosage: 2 DOSAGE FORM
     Route: 065
  4. MOXIFLOXACIN HYDROCHLORIDE. [Concomitant]
     Active Substance: MOXIFLOXACIN HYDROCHLORIDE
     Indication: PRODUCT USED FOR UNKNOWN INDICATION
     Dosage: 1 DOSAGE FORM, QD
     Route: 065
  5. PREDNISONE. [Concomitant]
     Active Substance: PREDNISONE
     Indication: PRODUCT USED FOR UNKNOWN INDICATION
     Dosage: UNK
     Route: 065
  6. BISACODYL. [Suspect]
     Active Substance: BISACODYL
     Indication: PRODUCT USED FOR UNKNOWN INDICATION
     Dosage: 1 DOSAGE FORM
     Route: 065
  7. DOCUSATE SODIUM CAPSULES [Suspect]
     Active Substance: DOCUSATE SODIUM
     Dosage: 3 DOSAGE FORM
     Route: 065
  8. AMITRIPTYLINE [Suspect]
     Active Substance: AMITRIPTYLINE
     Dosage: 4 DOSAGE FORM
     Route: 065
  9. RABEPRAZOLE [Suspect]
     Active Substance: RABEPRAZOLE
     Indication: MIGRAINE
     Dosage: 1 DOSAGE FORM, QD
     Route: 065
  10. BIAXIN [Concomitant]
     Active Substance: CLARITHROMYCIN
     Indication: PRODUCT USED FOR UNKNOWN INDICATION
     Dosage: 2 DOSAGE FORM, QD
     Route: 065
  11. CEPHALEXIN MONOHYDRATE. [Concomitant]
     Active Substance: CEPHALEXIN MONOHYDRATE
     Indication: PRODUCT USED FOR UNKNOWN INDICATION
     Dosage: 1 DOSAGE FORM, QID
     Route: 065
  12. PREGABALIN. [Suspect]
     Active Substance: PREGABALIN
     Indication: MIGRAINE
     Dosage: UNK
     Route: 065
  13. MORPHINE [Suspect]
     Active Substance: MORPHINE
     Indication: MIGRAINE
     Dosage: 1 DOSAGE FORM, QD
     Route: 065
  14. ATORVASTATIN [Suspect]
     Active Substance: ATORVASTATIN
     Indication: MIGRAINE
     Dosage: 1 DOSAGE FORM
     Route: 065
  15. SULFASALAZINE. [Suspect]
     Active Substance: SULFASALAZINE
     Indication: MIGRAINE
     Dosage: UNK
     Route: 065
  16. CARBAMAZEPINE. [Suspect]
     Active Substance: CARBAMAZEPINE
     Indication: MIGRAINE
     Dosage: 1 DOSAGE FORM
     Route: 065
  17. DOCUSATE SODIUM CAPSULES [Suspect]
     Active Substance: DOCUSATE SODIUM
     Indication: MIGRAINE
     Dosage: 1 DOSAGE FORM
     Route: 065

REACTIONS (13)
  - Drug intolerance [Unknown]
  - Pain [Unknown]
  - Limb injury [Unknown]
  - Dizziness [Unknown]
  - Sitting disability [Unknown]
  - Speech disorder [Unknown]
  - Oedema [Unknown]
  - Asthma [Unknown]
  - Dysarthria [Unknown]
  - Product use in unapproved indication [Unknown]
  - Respiration abnormal [Unknown]
  - Clumsiness [Unknown]
  - Dyskinesia [Unknown]
